FAERS Safety Report 9149560 (Version 1)
Quarter: 2013Q1

REPORT INFORMATION
  Report Type: Spontaneous
  Country: US (occurrence: None)
  Receive Date: 20130301
  Receipt Date: 20130301
  Transmission Date: 20140127
  Serious: Yes (Life-Threatening)
  Sender: FDA-Public Use
  Company Number: None

PATIENT
  Age: 34 Year
  Sex: Female
  Weight: 68.95 kg

DRUGS (1)
  1. PARAGARD [Suspect]
     Indication: CONTRACEPTION
     Dates: start: 20081024, end: 20130222

REACTIONS (4)
  - Device dislocation [None]
  - Uterine perforation [None]
  - Intestinal obstruction [None]
  - Appendicectomy [None]
